FAERS Safety Report 5684339-8 (Version None)
Quarter: 2008Q1

REPORT INFORMATION
  Report Type: 
  Country: None (occurrence: None)
  Receive Date: 20080328
  Receipt Date: 20080317
  Transmission Date: 20080703
  Serious: Yes (Other)
  Sender: FDA-Public Use
  Company Number: B0509531A

PATIENT
  Age: 18 Year
  Sex: Male
  Weight: 54 kg

DRUGS (4)
  1. LAMICTAL [Suspect]
     Indication: EPILEPSY
     Route: 048
     Dates: start: 20060101
  2. TERCIAN [Concomitant]
     Route: 048
  3. DEPAKENE [Concomitant]
     Indication: EPILEPSY
     Dosage: 250MG PER DAY
     Route: 048
  4. URBANYL [Concomitant]
     Indication: EPILEPSY
     Dosage: 15MG PER DAY
     Route: 048

REACTIONS (2)
  - CYTOLYTIC HEPATITIS [None]
  - WEIGHT DECREASED [None]
